FAERS Safety Report 5770402-X (Version None)
Quarter: 2008Q2

REPORT INFORMATION
  Report Type: 
  Country: None (occurrence: None)
  Receive Date: 20080613
  Receipt Date: 20080430
  Transmission Date: 20081010
  Serious: No
  Sender: FDA-Public Use
  Company Number: US-ABBOTT-08P-163-0450098-00

PATIENT
  Sex: Female
  Weight: 70.37 kg

DRUGS (3)
  1. HUMIRA [Suspect]
     Indication: CROHN'S DISEASE
     Route: 058
     Dates: start: 20080416, end: 20080416
  2. HUMIRA [Suspect]
     Route: 058
     Dates: start: 20080430, end: 20080430
  3. HUMIRA [Suspect]

REACTIONS (1)
  - INJECTION SITE PAIN [None]
